FAERS Safety Report 7434200-3 (Version None)
Quarter: 2011Q2

REPORT INFORMATION
  Report Type: 
  Country: None (occurrence: None)
  Receive Date: 20110425
  Receipt Date: 20110420
  Transmission Date: 20111010
  Serious: No
  Sender: FDA-Public Use
  Company Number: US-TEVA-277836USA

PATIENT
  Sex: Female
  Weight: 49.94 kg

DRUGS (3)
  1. TRAZODONE HCL [Concomitant]
     Indication: INSOMNIA
  2. PLAN B ONE-STEP [Suspect]
     Indication: POST COITAL CONTRACEPTION
     Dosage: 1.5 MILLIGRAM;
     Route: 048
     Dates: start: 20110417, end: 20110417
  3. OCELLA [Concomitant]
     Indication: CONTRACEPTION

REACTIONS (2)
  - DIARRHOEA [None]
  - ABDOMINAL DISCOMFORT [None]
